FAERS Safety Report 16393217 (Version 2)
Quarter: 2019Q2

REPORT INFORMATION
  Report Type: Spontaneous
  Country: JP (occurrence: JP)
  Receive Date: 20190605
  Receipt Date: 20190621
  Transmission Date: 20190711
  Serious: Yes (Other)
  Sender: FDA-Public Use
  Company Number: JP-GUERBET-JP-20190074

PATIENT
  Age: 36 Year
  Sex: Female

DRUGS (2)
  1. LIPIODOL [Suspect]
     Active Substance: ETHIODIZED OIL
     Indication: THERAPEUTIC EMBOLISATION
     Route: 013
  2. HISTOACRYL [Concomitant]
     Active Substance: ENBUCRILATE
     Indication: THERAPEUTIC EMBOLISATION
     Route: 013

REACTIONS (6)
  - Small intestine ulcer [Unknown]
  - Small intestinal perforation [Unknown]
  - Product use in unapproved indication [Unknown]
  - Vascular procedure complication [Unknown]
  - Angiopathy [Unknown]
  - Embolism arterial [Unknown]
